FAERS Safety Report 9472098 (Version 2)
Quarter: 2013Q3

REPORT INFORMATION
  Report Type: Spontaneous
  Country: IT (occurrence: IT)
  Receive Date: 20130823
  Receipt Date: 20130831
  Transmission Date: 20140515
  Serious: Yes (Hospitalization)
  Sender: FDA-Public Use
  Company Number: IT-MERCK-1308ITA009750

PATIENT
  Age: 66 Year
  Sex: Male

DRUGS (4)
  1. MK-0000 [Suspect]
     Dosage: UNK
  2. PEGINTERFERON ALFA-2A [Suspect]
     Indication: CHRONIC HEPATITIS C
     Dosage: UNK, QW
     Route: 058
     Dates: start: 20130522
  3. TELAPREVIR [Suspect]
     Indication: CHRONIC HEPATITIS C
     Dosage: UNK, QD
     Route: 048
     Dates: start: 20130522
  4. RIBAVIRIN [Suspect]
     Indication: CHRONIC HEPATITIS C
     Dosage: UNK, QD
     Route: 048
     Dates: start: 20130522

REACTIONS (4)
  - Asthenia [Unknown]
  - Eosinophilia [Unknown]
  - Q fever [Unknown]
  - Rash [Unknown]
